FAERS Safety Report 11986925 (Version 2)
Quarter: 2016Q1

REPORT INFORMATION
  Report Type: Spontaneous
  Country: SE (occurrence: SE)
  Receive Date: 20160202
  Receipt Date: 20160304
  Transmission Date: 20160526
  Serious: Yes (Death, Hospitalization)
  Sender: FDA-Public Use
  Company Number: SE-009507513-1602SWE000712

PATIENT
  Age: 46 Year
  Sex: Female

DRUGS (1)
  1. KEYTRUDA [Suspect]
     Active Substance: PEMBROLIZUMAB
     Indication: PANCREATIC CARCINOMA
     Dosage: UNK
     Dates: start: 20160120

REACTIONS (9)
  - Asthenia [Unknown]
  - Adverse event [Unknown]
  - Fatigue [Unknown]
  - Off label use [Unknown]
  - Unresponsive to stimuli [Unknown]
  - Cachexia [Unknown]
  - Product use issue [Unknown]
  - Sudden death [Fatal]
  - Malaise [Unknown]

NARRATIVE: CASE EVENT DATE: 201601
